FAERS Safety Report 7774211-1 (Version None)
Quarter: 2011Q3

REPORT INFORMATION
  Report Type: 
  Country: None (occurrence: None)
  Receive Date: 20110923
  Receipt Date: 20110912
  Transmission Date: 20111222
  Serious: Yes (Death)
  Sender: FDA-Public Use
  Company Number: US-PFIZER INC-2011144392

PATIENT
  Sex: Male
  Weight: 94.785 kg

DRUGS (1)
  1. NORVASC [Suspect]
     Indication: HYPERTENSION
     Dosage: 5 MG, 1X/DAY
     Route: 048
     Dates: end: 20100526

REACTIONS (3)
  - OEDEMA PERIPHERAL [None]
  - DEATH [None]
  - THYROID DISORDER [None]
